FAERS Safety Report 17415844 (Version 2)
Quarter: 2020Q1

REPORT INFORMATION
  Report Type: Report from Study
  Country: US (occurrence: US)
  Receive Date: 20200213
  Receipt Date: 20200228
  Transmission Date: 20200409
  Serious: Yes (Hospitalization)
  Sender: FDA-Public Use
  Company Number: US-ACTELION-A-NJ2017-155137

PATIENT
  Sex: Female
  Weight: 72.56 kg

DRUGS (6)
  1. AMLODIPINE [Concomitant]
     Active Substance: AMLODIPINE BESYLATE
  2. OPSUMIT [Suspect]
     Active Substance: MACITENTAN
     Dosage: 10 MG, QD
     Route: 048
  3. VELETRI [Suspect]
     Active Substance: EPOPROSTENOL
     Indication: PULMONARY HYPERTENSION
     Dosage: 6.9 NG/KG, PER MIN
     Route: 042
  4. ADEMPAS [Concomitant]
     Active Substance: RIOCIGUAT
  5. OPSUMIT [Suspect]
     Active Substance: MACITENTAN
     Indication: PULMONARY HYPERTENSION
     Dosage: 10 MG, QD
     Route: 048
  6. VELETRI [Suspect]
     Active Substance: EPOPROSTENOL
     Dosage: 5.1 NG/KG, PER MIN
     Route: 042

REACTIONS (36)
  - Pain in jaw [Not Recovered/Not Resolved]
  - Pain in extremity [Not Recovered/Not Resolved]
  - Wrong technique in product usage process [Recovered/Resolved]
  - Urticaria [Unknown]
  - Catheter site pain [Unknown]
  - Cough [Unknown]
  - Dyspnoea exertional [Not Recovered/Not Resolved]
  - Catheter site nodule [Unknown]
  - Palpitations [Recovered/Resolved]
  - Device dislocation [Unknown]
  - Erythema [Unknown]
  - Haemorrhage [Unknown]
  - Catheter site rash [Unknown]
  - Hot flush [Recovered/Resolved]
  - Infusion site scab [Unknown]
  - Device use error [Unknown]
  - Skin irritation [Not Recovered/Not Resolved]
  - Dizziness [Recovered/Resolved]
  - Back pain [Not Recovered/Not Resolved]
  - Catheter site discharge [Unknown]
  - Arthralgia [Not Recovered/Not Resolved]
  - Dyspnoea at rest [Not Recovered/Not Resolved]
  - Pulmonary arterial pressure increased [Unknown]
  - Pruritus [Unknown]
  - Headache [Not Recovered/Not Resolved]
  - Weight decreased [Unknown]
  - Catheter site swelling [Unknown]
  - Purulent discharge [Unknown]
  - Dermatitis contact [Not Recovered/Not Resolved]
  - Catheter site erythema [Unknown]
  - Chest pain [Recovered/Resolved]
  - Pain [Not Recovered/Not Resolved]
  - Musculoskeletal stiffness [Unknown]
  - Vascular device infection [Unknown]
  - Catheter site pruritus [Unknown]
  - Ventricular enlargement [Unknown]
